FAERS Safety Report 10263330 (Version 1)
Quarter: 2014Q2

REPORT INFORMATION
  Report Type: Report from Study
  Country: TR (occurrence: TR)
  Receive Date: 20140626
  Receipt Date: 20140626
  Transmission Date: 20141212
  Serious: Yes (Other)
  Sender: FDA-Public Use
  Company Number: TR-BAXTER-2014BAX033299

PATIENT
  Sex: 0

DRUGS (3)
  1. ENDOXAN 1G. IV [Suspect]
     Indication: HAEMATOLOGICAL MALIGNANCY
     Dosage: 2 G/M2; ON 2 CONSECUTIVE DAYS
     Route: 042
  2. UROMITEXAN 400 MG/4 ML. (MESNA) [Suspect]
     Indication: HAEMATOLOGICAL MALIGNANCY
     Dosage: 2 G/M2
     Route: 042
  3. GRANULOCYTE COLONY-STIMULATING FACTOR NOS [Suspect]
     Indication: PRODUCT USED FOR UNKNOWN INDICATION
     Dosage: 24 HOURS AFTER THE LAST DOSE OF CHEMO TO THE END OF PERIPHERAL STEM CELL COLLECTION
     Route: 065

REACTIONS (1)
  - Cardiac failure congestive [Recovered/Resolved]
